FAERS Safety Report 12536046 (Version 4)
Quarter: 2016Q3

REPORT INFORMATION
  Report Type: Spontaneous
  Country: GB (occurrence: GB)
  Receive Date: 20160707
  Receipt Date: 20160913
  Transmission Date: 20161109
  Serious: Yes (Death, Hospitalization, Other)
  Sender: FDA-Public Use
  Company Number: GB-009507513-1606GBR013225

PATIENT
  Age: 54 Year
  Sex: Male

DRUGS (25)
  1. MIRTAZAPINE. [Suspect]
     Active Substance: MIRTAZAPINE
     Dosage: UNK
     Route: 065
     Dates: start: 200202
  2. MIRTAZAPINE. [Suspect]
     Active Substance: MIRTAZAPINE
     Dosage: UNK
  3. PAROXETINE. [Suspect]
     Active Substance: PAROXETINE
     Indication: DEPRESSION
     Dosage: 40 MG, QD
     Route: 048
     Dates: start: 20011017, end: 20011211
  4. SEROXAT [Suspect]
     Active Substance: PAROXETINE HYDROCHLORIDE
     Indication: DEPRESSION
     Dosage: UNK
     Route: 048
     Dates: start: 20011211, end: 20011217
  5. SEROXAT [Suspect]
     Active Substance: PAROXETINE HYDROCHLORIDE
     Dosage: UNK
     Route: 048
     Dates: start: 20011116
  6. AMITRIPTYLINE HYDROCHLORIDE. [Concomitant]
     Active Substance: AMITRIPTYLINE HYDROCHLORIDE
     Indication: PRODUCT USED FOR UNKNOWN INDICATION
     Dosage: 10 MG, UNK, FREQUENCY OF PRODUCT: 1N
     Dates: start: 200805
  7. DIAZEPAM. [Concomitant]
     Active Substance: DIAZEPAM
     Indication: PRODUCT USED FOR UNKNOWN INDICATION
  8. PROPRANOLOL HYDROCHLORIDE. [Concomitant]
     Active Substance: PROPRANOLOL HYDROCHLORIDE
     Indication: PRODUCT USED FOR UNKNOWN INDICATION
     Dosage: 40 MG, TID
     Dates: start: 200007
  9. MIRTAZAPINE. [Suspect]
     Active Substance: MIRTAZAPINE
     Dosage: UNK
     Route: 048
     Dates: start: 20111106
  10. PAROXETINE. [Suspect]
     Active Substance: PAROXETINE
     Dosage: 30 MG, UNK
     Route: 048
     Dates: start: 20011106
  11. SEROXAT [Suspect]
     Active Substance: PAROXETINE HYDROCHLORIDE
     Dosage: UNK
     Route: 048
     Dates: start: 20011129
  12. SEROXAT [Suspect]
     Active Substance: PAROXETINE HYDROCHLORIDE
     Dosage: UNK
     Route: 048
     Dates: start: 20011106
  13. FLUOXETINE [Concomitant]
     Active Substance: FLUOXETINE HYDROCHLORIDE
     Indication: PRODUCT USED FOR UNKNOWN INDICATION
     Dosage: 20 MG, UNK
  14. SINEMET [Concomitant]
     Active Substance: CARBIDOPA\LEVODOPA
     Indication: PRODUCT USED FOR UNKNOWN INDICATION
  15. SEROXAT [Suspect]
     Active Substance: PAROXETINE HYDROCHLORIDE
     Dosage: UNK
     Route: 048
     Dates: start: 200007, end: 20011217
  16. SEROXAT [Suspect]
     Active Substance: PAROXETINE HYDROCHLORIDE
     Dosage: 20 MG, QD
     Route: 048
     Dates: start: 2001
  17. DIAZEPAM. [Concomitant]
     Active Substance: DIAZEPAM
     Indication: PRODUCT USED FOR UNKNOWN INDICATION
     Dosage: STRENGTH: 2 MG/5 MG
     Route: 065
     Dates: start: 20011101
  18. SINEMET [Concomitant]
     Active Substance: CARBIDOPA\LEVODOPA
     Indication: PRODUCT USED FOR UNKNOWN INDICATION
     Dosage: 1 1/2 TABLETS
     Route: 065
  19. MIRTAZAPINE. [Suspect]
     Active Substance: MIRTAZAPINE
     Dosage: UNK
     Route: 048
  20. PAROXETINE. [Suspect]
     Active Substance: PAROXETINE
     Dosage: 20 MG
     Route: 065
     Dates: start: 20011129
  21. PAXIL [Suspect]
     Active Substance: PAROXETINE HYDROCHLORIDE
     Indication: DEPRESSION
     Dosage: UNK
     Route: 048
     Dates: start: 200007, end: 20011217
  22. STALEVO [Suspect]
     Active Substance: CARBIDOPA\ENTACAPONE\LEVODOPA
     Indication: PARKINSON^S DISEASE
     Dosage: UNK
     Route: 065
  23. GAMANIL [Concomitant]
     Indication: PRODUCT USED FOR UNKNOWN INDICATION
     Dosage: 70 MG, BID
     Route: 065
     Dates: start: 20011201, end: 200201
  24. DIAZEPAM. [Concomitant]
     Active Substance: DIAZEPAM
     Indication: DEPRESSION
     Dosage: UNK
     Route: 065
     Dates: start: 20011129
  25. GAMANIL [Concomitant]
     Indication: DEPRESSION

REACTIONS (31)
  - Aggression [Unknown]
  - Sleep disorder [Unknown]
  - Agitation [Unknown]
  - Apathy [Unknown]
  - Hyperhidrosis [Unknown]
  - Restlessness [Unknown]
  - Tremor [Unknown]
  - Parkinson^s disease [Fatal]
  - Hallucination [Unknown]
  - Muscle spasms [Unknown]
  - Tearfulness [Unknown]
  - Nightmare [Unknown]
  - Decreased appetite [Unknown]
  - Anxiety disorder [Unknown]
  - Withdrawal syndrome [Unknown]
  - Depression [Unknown]
  - Terminal insomnia [Unknown]
  - Feeling guilty [Unknown]
  - Nightmare [Unknown]
  - Trismus [Unknown]
  - Palpitations [Unknown]
  - Abnormal dreams [Unknown]
  - Negative thoughts [Unknown]
  - Paraesthesia [Unknown]
  - Decreased interest [Unknown]
  - Psychomotor hyperactivity [Unknown]
  - Anxiety [Unknown]
  - Suicidal ideation [Unknown]
  - Panic attack [Unknown]
  - Weight decreased [Unknown]
  - Intrusive thoughts [Unknown]

NARRATIVE: CASE EVENT DATE: 200111
